FAERS Safety Report 24322171 (Version 2)
Quarter: 2024Q4

REPORT INFORMATION
  Report Type: Spontaneous
  Country: US (occurrence: US)
  Receive Date: 20240916
  Receipt Date: 20241007
  Transmission Date: 20250115
  Serious: Yes (Life-Threatening, Hospitalization, Other)
  Sender: SANDOZ
  Company Number: US-NOVPHSZ-PHHY2018US195616

PATIENT
  Age: 66 Year
  Sex: Male

DRUGS (6)
  1. MYCOPHENOLATE MOFETIL [Suspect]
     Active Substance: MYCOPHENOLATE MOFETIL
     Indication: Lung transplant
     Dosage: UNK
     Route: 065
  2. MYCOPHENOLATE MOFETIL [Suspect]
     Active Substance: MYCOPHENOLATE MOFETIL
     Indication: Immunosuppressant drug therapy
  3. PREDNISONE [Suspect]
     Active Substance: PREDNISONE
     Indication: Lung transplant
     Dosage: 12.5 MG, QD
     Route: 065
  4. PREDNISONE [Suspect]
     Active Substance: PREDNISONE
     Indication: Immunosuppressant drug therapy
  5. SIROLIMUS [Suspect]
     Active Substance: SIROLIMUS
     Indication: Lung transplant
     Dosage: UNK
     Route: 065
  6. SIROLIMUS [Suspect]
     Active Substance: SIROLIMUS
     Indication: Immunosuppressant drug therapy

REACTIONS (11)
  - Varicella zoster virus infection [Recovered/Resolved]
  - Herpes zoster meningoencephalitis [Recovered/Resolved]
  - Mental status changes [Recovering/Resolving]
  - Ophthalmic herpes zoster [Recovered/Resolved]
  - Necrotising retinitis [Recovered/Resolved]
  - Unresponsive to stimuli [Recovered/Resolved]
  - Rash vesicular [Recovering/Resolving]
  - Agitation [Recovering/Resolving]
  - Pain of skin [Recovering/Resolving]
  - Ocular hyperaemia [Recovering/Resolving]
  - Product use in unapproved indication [Unknown]
